FAERS Safety Report 4981474-4 (Version None)
Quarter: 2006Q2

REPORT INFORMATION
  Report Type: 
  Country: None (occurrence: None)
  Receive Date: 20060419
  Receipt Date: 20060404
  Transmission Date: 20061013
  Serious: Yes (Death, Other)
  Sender: FDA-Public Use
  Company Number: 2005-US-00873

PATIENT
  Age: 48 Year
  Sex: Male

DRUGS (20)
  1. CLOZAPINE [Suspect]
     Indication: SCHIZOPHRENIA
     Dosage: 400 MG, QD, ORAL
     Route: 048
     Dates: start: 20000301, end: 20050101
  2. AZITHROMYCIN [Concomitant]
  3. ZIPRASIDONE HCL [Concomitant]
  4. LORAZEPAM [Concomitant]
  5. ALUDROX [Concomitant]
  6. TRAZODONE HCL [Concomitant]
  7. MAGNESIUM HYDROXIDE TAB [Concomitant]
  8. ACETAMINOPHEN [Concomitant]
  9. DILTIAZEM [Concomitant]
  10. PANTOPRAZOLE [Concomitant]
  11. DOCUSATE SODIUM [Concomitant]
  12. ZIPRASIDONE HCL [Concomitant]
  13. SALBUTAMOL W/IPRATROPIUM [Concomitant]
  14. TERBINAFINE HCL [Concomitant]
  15. CEFTRIAXONE [Concomitant]
  16. SALBUTAMOL [Concomitant]
  17. OXYGEN [Concomitant]
  18. SERETIDE [Concomitant]
  19. NICOTINE [Concomitant]
  20. BREVA [Concomitant]

REACTIONS (3)
  - MYOCARDIAL INFARCTION [None]
  - PNEUMONIA [None]
  - SINUS TACHYCARDIA [None]
